FAERS Safety Report 7964715-0 (Version None)
Quarter: 2011Q4

REPORT INFORMATION
  Report Type: 
  Country: None (occurrence: None)
  Receive Date: 20111208
  Receipt Date: 20111202
  Transmission Date: 20120403
  Serious: Yes (Hospitalization, Other)
  Sender: FDA-Public Use
  Company Number: US-AMGEN-USASP2011046343

PATIENT
  Age: 68 Year
  Sex: Female

DRUGS (3)
  1. ENBREL [Suspect]
     Indication: RHEUMATOID ARTHRITIS
     Dosage: UNK
  2. ENBREL [Suspect]
     Dosage: 50 MG, QWK
     Dates: start: 20060801, end: 20110801
  3. METHOTREXATE [Concomitant]
     Dosage: UNK

REACTIONS (9)
  - SPINAL COLUMN STENOSIS [None]
  - SCAR [None]
  - WEIGHT DECREASED [None]
  - ARTHRALGIA [None]
  - INCISION SITE INFECTION [None]
  - OSTEOARTHRITIS [None]
  - SPINAL OSTEOARTHRITIS [None]
  - CELLULITIS [None]
  - BREAST ABSCESS [None]
